FAERS Safety Report 9989099 (Version 2)
Quarter: 2014Q1

REPORT INFORMATION
  Report Type: Report from Study
  Country: PR (occurrence: PR)
  Receive Date: 20140310
  Receipt Date: 20140310
  Transmission Date: 20141002
  Serious: No
  Sender: FDA-Public Use
  Company Number: PR-ABBVIE-13P-131-1118229-00

PATIENT
  Age: 52 Year
  Sex: Female
  Weight: 67.19 kg

DRUGS (4)
  1. HUMIRA [Suspect]
     Indication: RHEUMATOID ARTHRITIS
     Route: 058
     Dates: start: 2010
  2. LOSARTAN [Concomitant]
     Indication: HYPERTENSION
     Route: 048
  3. TRAMADOL [Concomitant]
     Indication: PAIN
     Dosage: AS NEEDED
     Route: 048
  4. RELAFEN [Concomitant]
     Indication: PAIN
     Route: 048

REACTIONS (1)
  - Sacroiliitis [Unknown]
